FAERS Safety Report 13236994 (Version 2)
Quarter: 2017Q1

REPORT INFORMATION
  Report Type: Spontaneous
  Country: None (occurrence: US)
  Receive Date: 20170215
  Receipt Date: 20170308
  Transmission Date: 20170428
  Serious: No
  Sender: FDA-Public Use
  Company Number: US-MERZ NORTH AMERICA, INC.-17MRZ-00038

PATIENT
  Sex: Female

DRUGS (1)
  1. XEOMIN [Suspect]
     Active Substance: INCOBOTULINUMTOXINA
     Indication: SKIN WRINKLING
     Dosage: 44 UNITS (TOTAL)?FRONTALIS 16 UNITS?GLABELLAR 12 UNITS?OCULI 16 UNITS
     Dates: start: 20170214

REACTIONS (1)
  - Burning sensation [Unknown]
